FAERS Safety Report 7557228-1 (Version None)
Quarter: 2011Q2

REPORT INFORMATION
  Report Type: 
  Country: None (occurrence: None)
  Receive Date: 20110620
  Receipt Date: 20110308
  Transmission Date: 20111010
  Serious: No
  Sender: FDA-Public Use
  Company Number: US-MYLANLABS-2011S1004645

PATIENT
  Age: 61 Year
  Sex: Female
  Weight: 65.77 kg

DRUGS (3)
  1. PERFOROMIST [Suspect]
     Indication: CHRONIC OBSTRUCTIVE PULMONARY DISEASE
     Route: 055
     Dates: start: 20110221
  2. ALENDRONATE SODIUM [Concomitant]
  3. BUDESONIDE [Suspect]
     Indication: CHRONIC OBSTRUCTIVE PULMONARY DISEASE
     Route: 055
     Dates: start: 20110221

REACTIONS (2)
  - CHEST DISCOMFORT [None]
  - DYSPNOEA [None]
